FAERS Safety Report 23949594 (Version 3)
Quarter: 2024Q3

REPORT INFORMATION
  Report Type: Report from Study
  Country: US (occurrence: US)
  Receive Date: 20240607
  Receipt Date: 20240828
  Transmission Date: 20241016
  Serious: Yes (Other)
  Sender: ROCHE
  Company Number: US-ROCHE-3575446

PATIENT
  Age: 57 Year
  Sex: Male
  Weight: 75.8 kg

DRUGS (15)
  1. OCREVUS [Suspect]
     Active Substance: OCRELIZUMAB
     Indication: Relapsing multiple sclerosis
     Dosage: ON 15/AUG/2023, HE ADMINISTERED LAST DOSE OF OCRELIZUMAB
     Route: 042
     Dates: start: 20220614, end: 20240517
  2. OCREVUS [Suspect]
     Active Substance: OCRELIZUMAB
     Indication: Demyelination
  3. DIAZEPAM [Concomitant]
     Active Substance: DIAZEPAM
  4. ASCORBIC ACID [Concomitant]
     Active Substance: ASCORBIC ACID
     Route: 048
  5. CHOLECALCIFEROL [Concomitant]
     Active Substance: CHOLECALCIFEROL
     Dosage: 25 MCG
  6. COENZYME Q10 [Concomitant]
     Active Substance: DIETARY SUPPLEMENT\UBIDECARENONE
  7. CRANBERRY [Concomitant]
     Active Substance: CRANBERRY
     Route: 048
  8. DICLOFENAC [Concomitant]
     Active Substance: DICLOFENAC
     Dates: start: 20231031
  9. FERROUS SULFATE [Concomitant]
     Active Substance: FERROUS SULFATE
     Route: 048
  10. MIDODRINE [Concomitant]
     Active Substance: MIDODRINE
     Dosage: HOLD IF BLOOD PRESSURE IS GREATER 130/80
     Dates: start: 20240409, end: 20240409
  11. PSYLLIUM [Concomitant]
     Active Substance: PLANTAGO SEED
     Route: 048
  12. ROSUVASTATIN [Concomitant]
     Active Substance: ROSUVASTATIN\ROSUVASTATIN CALCIUM
     Route: 048
     Dates: start: 20230903
  13. SODIUM BICARBONATE [Concomitant]
     Active Substance: SODIUM BICARBONATE
     Route: 048
     Dates: start: 20230906
  14. TRAZODONE [Concomitant]
     Active Substance: TRAZODONE HYDROCHLORIDE
     Route: 048
     Dates: start: 20240205
  15. WARFARIN [Concomitant]
     Active Substance: WARFARIN
     Route: 048
     Dates: start: 20240507

REACTIONS (8)
  - Fall [Unknown]
  - Wrist fracture [Recovered/Resolved]
  - Multiple sclerosis [Unknown]
  - JC polyomavirus test positive [Unknown]
  - Urinary tract infection [Unknown]
  - Gait disturbance [Unknown]
  - Neurogenic bladder [Unknown]
  - Upper limb fracture [Recovered/Resolved]

NARRATIVE: CASE EVENT DATE: 20240101
